FAERS Safety Report 8120883-1 (Version None)
Quarter: 2012Q1

REPORT INFORMATION
  Report Type: 
  Country: None (occurrence: None)
  Receive Date: 20120203
  Receipt Date: 20120124
  Transmission Date: 20120608
  Serious: Yes (Other)
  Sender: FDA-Public Use
  Company Number: 1000027417

PATIENT
  Age: 69 Year
  Sex: Female

DRUGS (5)
  1. AVALIDE (KARVEA HCT) (KARVEA HCT) [Concomitant]
  2. NEURONTIN [Concomitant]
  3. LEXAPRO [Suspect]
     Indication: DEPRESSION
     Dosage: 15 MG (15 MG,1 IN 1 D),ORAL
     Route: 048
     Dates: start: 20110101
  4. LEXAPRO [Suspect]
     Indication: ANXIETY
     Dosage: 15 MG (15 MG,1 IN 1 D),ORAL
     Route: 048
     Dates: start: 20110101
  5. DILANTIN [Concomitant]

REACTIONS (1)
  - EYE HAEMORRHAGE [None]
